FAERS Safety Report 5279539-5 (Version None)
Quarter: 2007Q1

REPORT INFORMATION
  Report Type: 
  Country: None (occurrence: None)
  Receive Date: 20070328
  Receipt Date: 20070316
  Transmission Date: 20070707
  Serious: Yes (Life-Threatening, Hospitalization)
  Sender: FDA-Public Use
  Company Number: GB-PFIZER INC-2007021480

PATIENT
  Age: 44 Year
  Weight: 65 kg

DRUGS (5)
  1. PREDNISONE [Suspect]
     Indication: RHEUMATOID ARTHRITIS
     Route: 048
  2. METHOTREXATE [Suspect]
     Indication: RHEUMATOID ARTHRITIS
     Route: 048
  3. ETANERCEPT [Suspect]
     Indication: RHEUMATOID ARTHRITIS
     Route: 058
  4. FOLIC ACID [Concomitant]
  5. RISEDRONATE SODIUM [Concomitant]

REACTIONS (5)
  - HYPOTENSION [None]
  - INFECTION [None]
  - PNEUMONIA BACTERIAL [None]
  - SERRATIA INFECTION [None]
  - SICKLE CELL ANAEMIA WITH CRISIS [None]
